FAERS Safety Report 7382806-2 (Version None)
Quarter: 2011Q1

REPORT INFORMATION
  Report Type: 
  Country: None (occurrence: None)
  Receive Date: 20110330
  Receipt Date: 20110318
  Transmission Date: 20110831
  Serious: No
  Sender: FDA-Public Use
  Company Number: US-BIOGENIDEC-2011BI010462

PATIENT
  Age: 50 Year
  Sex: Male

DRUGS (2)
  1. AVONEX [Suspect]
     Indication: MULTIPLE SCLEROSIS
     Route: 030
     Dates: start: 20110131
  2. AVONEX [Suspect]
     Route: 030
     Dates: start: 20000121, end: 20050121

REACTIONS (2)
  - T-LYMPHOCYTE COUNT DECREASED [None]
  - YELLOW SKIN [None]
